FAERS Safety Report 13853373 (Version 1)
Quarter: 2017Q3

REPORT INFORMATION
  Report Type: Report from Study
  Country: CN (occurrence: CN)
  Receive Date: 20170809
  Receipt Date: 20170809
  Transmission Date: 20171127
  Serious: Yes (Other)
  Sender: FDA-Public Use
  Company Number: CN-ELI_LILLY_AND_COMPANY-CN201708000205

PATIENT
  Age: 37 Year
  Sex: Female
  Weight: 67 kg

DRUGS (5)
  1. INSULIN, LISPRO [Suspect]
     Active Substance: INSULIN LISPRO
     Dosage: 17 U, EACH EVENING, BEFORE SLEEPING
     Route: 065
     Dates: start: 201703
  2. INSULIN, LISPRO [Suspect]
     Active Substance: INSULIN LISPRO
     Dosage: FROM 7 TO 8 U, EACH EVENING
     Route: 065
     Dates: start: 201703
  3. INSULIN, LISPRO [Suspect]
     Active Substance: INSULIN LISPRO
     Dosage: 4 U, AT THREE MEALS
     Route: 065
     Dates: start: 201703
  4. INSULIN, LISPRO [Suspect]
     Active Substance: INSULIN LISPRO
     Indication: TYPE 1 DIABETES MELLITUS
     Dosage: 8 TO 10 U, QID, AT THREE MEALS
     Route: 065
     Dates: start: 201703
  5. INSULIN, LISPRO [Suspect]
     Active Substance: INSULIN LISPRO
     Dosage: MORE THAN 10 U, EACH EVENING, BEFORE SLEEPING
     Route: 065
     Dates: start: 201703

REACTIONS (5)
  - Blood glucose fluctuation [Unknown]
  - Blood glucose increased [Unknown]
  - Syncope [Unknown]
  - Conduction disorder [Unknown]
  - Hypoglycaemia [Unknown]

NARRATIVE: CASE EVENT DATE: 201703
